FAERS Safety Report 18600789 (Version 3)
Quarter: 2020Q4

REPORT INFORMATION
  Report Type: Spontaneous
  Country: CH (occurrence: CH)
  Receive Date: 20201210
  Receipt Date: 20201221
  Transmission Date: 20210114
  Serious: Yes (Life-Threatening, Hospitalization, Other)
  Sender: FDA-Public Use
  Company Number: CH-ROCHE-2711269

PATIENT
  Sex: Male
  Weight: 75 kg

DRUGS (21)
  1. CANDESARTAN SANDOZ [Concomitant]
     Active Substance: CANDESARTAN
     Route: 048
  2. PANTOZOL [Concomitant]
     Active Substance: PANTOPRAZOLE SODIUM
  3. CANCIDAS [Concomitant]
     Active Substance: CASPOFUNGIN ACETATE
     Dates: start: 20201030, end: 20201105
  4. CEFEPIME [Concomitant]
     Active Substance: CEFEPIME HYDROCHLORIDE
     Dates: start: 20201106, end: 20201120
  5. FOLATE [Concomitant]
     Active Substance: FOLATE SODIUM
  6. ACTEMRA [Suspect]
     Active Substance: TOCILIZUMAB
     Indication: RHEUMATOID ARTHRITIS
     Route: 042
     Dates: start: 20201021, end: 20201030
  7. PLAVIX [Concomitant]
     Active Substance: CLOPIDOGREL BISULFATE
     Route: 048
  8. IMIPENEM [Concomitant]
     Active Substance: IMIPENEM
     Dates: start: 20201104, end: 20201106
  9. METFIN [Concomitant]
     Active Substance: METFORMIN HYDROCHLORIDE
  10. NORDIMET [METHOTREXATE] [Concomitant]
     Active Substance: METHOTREXATE
     Dates: end: 20201006
  11. CALCIMAGON D3 [Concomitant]
     Active Substance: CALCIUM\CHOLECALCIFEROL
     Route: 048
  12. ACTEMRA [Suspect]
     Active Substance: TOCILIZUMAB
     Indication: GIANT CELL ARTERITIS
  13. PREGABALIN. [Concomitant]
     Active Substance: PREGABALIN
  14. PIPERACILLIN/TAZOBACTAM [Concomitant]
     Active Substance: PIPERACILLIN SODIUM\TAZOBACTAM SODIUM
     Dates: start: 20201030, end: 20201104
  15. FLAGYL [Concomitant]
     Active Substance: METRONIDAZOLE\METRONIDAZOLE HYDROCHLORIDE
     Dates: start: 20201106, end: 20201120
  16. ATORVASTATIN [Concomitant]
     Active Substance: ATORVASTATIN
  17. SERETIDE [Concomitant]
     Active Substance: FLUTICASONE PROPIONATE\SALMETEROL XINAFOATE
  18. BACTRIM [Suspect]
     Active Substance: SULFAMETHOXAZOLE\TRIMETHOPRIM
     Indication: RHEUMATOID ARTHRITIS
     Route: 048
  19. PLAQUENIL [Concomitant]
     Active Substance: HYDROXYCHLOROQUINE SULFATE
  20. SPIRICORT [Concomitant]
     Active Substance: PREDNISOLONE
  21. GENTAMICIN. [Concomitant]
     Active Substance: GENTAMICIN
     Dates: start: 20201030

REACTIONS (9)
  - Hypertensive heart disease [Unknown]
  - Agranulocytosis [Recovered/Resolved]
  - Anal abscess [Unknown]
  - Phlebitis [Unknown]
  - Anaemia [Unknown]
  - Pneumonia [Unknown]
  - Thrombocytopenia [Unknown]
  - Sepsis [Unknown]
  - Leukopenia [Unknown]

NARRATIVE: CASE EVENT DATE: 20201029
